FAERS Safety Report 14003075 (Version 1)
Quarter: 2017Q3

REPORT INFORMATION
  Report Type: Spontaneous
  Country: ES (occurrence: ES)
  Receive Date: 20170922
  Receipt Date: 20170922
  Transmission Date: 20171128
  Serious: Yes (Death)
  Sender: FDA-Public Use
  Company Number: ES-B.I. PHARMACEUTICALS,INC./RIDGEFIELD-2017-BI-051009

PATIENT
  Age: 86 Year
  Sex: Male

DRUGS (3)
  1. GILOTRIF [Suspect]
     Active Substance: AFATINIB
     Indication: LUNG NEOPLASM MALIGNANT
     Route: 065
     Dates: start: 20170909, end: 20170912
  2. GILOTRIF [Suspect]
     Active Substance: AFATINIB
     Indication: EGFR GENE MUTATION
     Route: 065
     Dates: start: 20170913, end: 20170915
  3. LEVETIRACETAM. [Concomitant]
     Active Substance: LEVETIRACETAM
     Indication: EPILEPSY
     Route: 065

REACTIONS (7)
  - Mucosal inflammation [Not Recovered/Not Resolved]
  - Rash [Unknown]
  - Candida infection [Unknown]
  - Wrong technique in product usage process [Recovered/Resolved]
  - Malignant neoplasm progression [Fatal]
  - Wrong technique in product usage process [Recovered/Resolved]
  - Dark circles under eyes [Unknown]

NARRATIVE: CASE EVENT DATE: 20170909
